FAERS Safety Report 6161063-9 (Version None)
Quarter: 2009Q2

REPORT INFORMATION
  Report Type: 
  Country: None (occurrence: None)
  Receive Date: 20090420
  Receipt Date: 20090416
  Transmission Date: 20091009
  Serious: Yes (Hospitalization)
  Sender: FDA-Public Use
  Company Number: US-PFIZER INC-2009157461

PATIENT
  Sex: Female
  Weight: 95.238 kg

DRUGS (10)
  1. NAPROXEN [Suspect]
     Indication: RHEUMATOID ARTHRITIS
     Dosage: 5XDAILY
     Route: 048
     Dates: start: 20080425, end: 20080821
  2. BLINDED *PLACEBO [Suspect]
     Indication: RHEUMATOID ARTHRITIS
     Dosage: 5XDAILY
     Route: 048
     Dates: start: 20080425, end: 20080821
  3. BLINDED CELECOXIB [Suspect]
     Indication: RHEUMATOID ARTHRITIS
     Dosage: 5XDAILY
     Route: 048
     Dates: start: 20080425, end: 20080821
  4. IBUPROFEN [Suspect]
     Indication: RHEUMATOID ARTHRITIS
     Dosage: 5XDAILY
     Route: 048
     Dates: start: 20080425, end: 20080821
  5. NAPROXEN [Suspect]
     Dosage: 5XDAILY
     Route: 048
     Dates: start: 20080425, end: 20080821
  6. ZOCOR [Concomitant]
     Dosage: UNK
     Route: 048
     Dates: start: 20061030
  7. ZIAC [Concomitant]
     Dosage: UNK
     Route: 048
     Dates: start: 20040126
  8. ADVAIR HFA [Concomitant]
     Dosage: UNK,  INHALER
     Route: 050
     Dates: start: 20070317
  9. ALBUTEROL [Concomitant]
     Dosage: UNK, INHALER
     Route: 050
     Dates: start: 20050225
  10. ACETYLSALICYLIC ACID [Concomitant]
     Dosage: UNK
     Route: 048
     Dates: start: 20040616

REACTIONS (1)
  - ANGINA PECTORIS [None]
